FAERS Safety Report 9759518 (Version 3)
Quarter: 2014Q2

REPORT INFORMATION
  Report Type: Spontaneous
  Country: US (occurrence: None)
  Receive Date: 20131212
  Receipt Date: 20140602
  Transmission Date: 20141212
  Serious: Yes (Death)
  Sender: FDA-Public Use
  Company Number: 2013-US-004073

PATIENT
  Age: 45 Year
  Sex: Female
  Weight: 43.1 kg

DRUGS (5)
  1. XYREM [Suspect]
     Indication: NARCOLEPSY
     Route: 048
     Dates: start: 201203
  2. XYREM [Suspect]
     Indication: CATAPLEXY
     Route: 048
     Dates: start: 201203
  3. FLURAZEPAM HCL (FLURAZEPAM HYDROCHLORIDE) CAPSULE [Concomitant]
  4. CLONAZEPAM (CLONAZEPAM) TABLET [Concomitant]
  5. SEROQUEL (QUETIAPINE FUMARATE) TABLET [Concomitant]

REACTIONS (1)
  - Death [None]
